FAERS Safety Report 8437320-X (Version None)
Quarter: 2012Q2

REPORT INFORMATION
  Report Type: 
  Country: None (occurrence: None)
  Receive Date: 20120614
  Receipt Date: 20120305
  Transmission Date: 20120825
  Serious: No
  Sender: FDA-Public Use
  Company Number: US-AMGEN-USASP2011035926

PATIENT
  Age: 55 Year
  Sex: Female
  Weight: 60.317 kg

DRUGS (6)
  1. CALCIUM VITAMIN D [Concomitant]
     Dosage: UNK
  2. LOVAZA [Concomitant]
     Dosage: 1000 UNIT, QD
  3. PROLIA [Suspect]
     Indication: OSTEOPOROSIS POSTMENOPAUSAL
     Dosage: 60 MG, Q6MO
     Route: 058
     Dates: start: 20110420
  4. VITAMIN D [Concomitant]
     Dosage: 5000 UNIT, QOD
  5. STRONTIUM [Concomitant]
     Dosage: 200 MG, QD
  6. MULTI-VITAMIN [Concomitant]
     Dosage: UNK

REACTIONS (1)
  - NEPHROLITHIASIS [None]
